FAERS Safety Report 6221819-0 (Version None)
Quarter: 2009Q2

REPORT INFORMATION
  Report Type: 
  Country: None (occurrence: None)
  Receive Date: 20090608
  Receipt Date: 20090602
  Transmission Date: 20091009
  Serious: Yes (Death)
  Sender: FDA-Public Use
  Company Number: SPV1-2009-01123

PATIENT
  Age: 61 Year
  Sex: Female
  Weight: 55.8 kg

DRUGS (11)
  1. FOSRENOL [Suspect]
     Indication: HYPERPHOSPHATAEMIA
     Dosage: 1000 MG, 3X/DAY:TID, ORAL
     Route: 048
     Dates: start: 20080501, end: 20090601
  2. COUMADIN /0014802/(WARFARIN SODIUM) [Concomitant]
  3. ISOSORBIDE (ISOSORBIDE) [Concomitant]
  4. VITAMINS /00067501/ (ASCORBIC ACID, ERGOCALIFEROL, NICOTINAMIDE, RETIN [Concomitant]
  5. NOVOLIN 70/30 [Concomitant]
  6. DILTIAZEM [Concomitant]
  7. GABAPENTIN [Concomitant]
  8. LASIX [Concomitant]
  9. NITROGLYCERIN [Concomitant]
  10. PREDNISONE TAB [Concomitant]
  11. SIMVASTATIN [Concomitant]

REACTIONS (1)
  - MYOCARDIAL INFARCTION [None]
